FAERS Safety Report 24299567 (Version 1)
Quarter: 2024Q3

REPORT INFORMATION
  Report Type: Spontaneous
  Country: MY (occurrence: MY)
  Receive Date: 20240909
  Receipt Date: 20240909
  Transmission Date: 20241017
  Serious: Yes (Death, Other)
  Sender: RANBAXY
  Company Number: MY-SUN PHARMACEUTICAL INDUSTRIES LTD-2024R1-465775

PATIENT
  Age: 34 Year
  Sex: Female

DRUGS (3)
  1. FUROSEMIDE [Suspect]
     Active Substance: FUROSEMIDE
     Indication: Hypertension
     Dosage: UNK
     Route: 065
  2. LABETALOL [Suspect]
     Active Substance: LABETALOL\LABETALOL HYDROCHLORIDE
     Indication: Hypertension
     Dosage: UNK
     Route: 065
  3. DEXAMETHASONE [Suspect]
     Active Substance: DEXAMETHASONE
     Indication: Labour induction
     Dosage: UNK
     Route: 065

REACTIONS (3)
  - Condition aggravated [Fatal]
  - Cardiac arrest [Fatal]
  - Exposure during pregnancy [Unknown]
